FAERS Safety Report 12719833 (Version 1)
Quarter: 2016Q3

REPORT INFORMATION
  Report Type: Spontaneous
  Country: US (occurrence: US)
  Receive Date: 20160907
  Receipt Date: 20160907
  Transmission Date: 20161109
  Serious: No
  Sender: FDA-Public Use
  Company Number: US-AUROBINDO-AUR-APL-2015-08924

PATIENT
  Sex: Male
  Weight: 90.7 kg

DRUGS (5)
  1. LIDOCAINE. [Concomitant]
     Active Substance: LIDOCAINE
     Indication: PAIN
     Dosage: 2 ML, ONCE A DAY
     Route: 065
  2. HYDROCHLOROTHIAZIDE. [Suspect]
     Active Substance: HYDROCHLOROTHIAZIDE
     Indication: PRODUCT USED FOR UNKNOWN INDICATION
     Route: 065
  3. CELESTONE [Concomitant]
     Active Substance: BETAMETHASONE
     Indication: INFLAMMATION
     Dosage: 3 MG, DAILY
     Route: 065
     Dates: start: 20150803
  4. IOHEXOL [Concomitant]
     Active Substance: IOHEXOL
     Indication: VISUAL IMPAIRMENT
     Dosage: 0.5 ML, ONCE A DAY
     Route: 065
     Dates: start: 20150803
  5. BUPIVACAINE. [Concomitant]
     Active Substance: BUPIVACAINE
     Indication: PAIN
     Dosage: 1 ML, ONCE A DAY
     Route: 065
     Dates: start: 20150803

REACTIONS (2)
  - Drug hypersensitivity [Recovered/Resolved]
  - Feeling abnormal [Recovered/Resolved]
